APPROVED DRUG PRODUCT: MYCOPHENOLATE MOFETIL
Active Ingredient: MYCOPHENOLATE MOFETIL
Strength: 250MG
Dosage Form/Route: CAPSULE;ORAL
Application: A210181 | Product #001 | TE Code: AB
Applicant: CONCORD BIOTECH LTD
Approved: Jan 8, 2019 | RLD: No | RS: No | Type: RX